FAERS Safety Report 10336326 (Version 2)
Quarter: 2014Q3

REPORT INFORMATION
  Report Type: Spontaneous
  Country: US (occurrence: US)
  Receive Date: 20140723
  Receipt Date: 20140723
  Transmission Date: 20150326
  Serious: No
  Sender: FDA-Public Use
  Company Number: US-BRISTOL-MYERS SQUIBB COMPANY-20104774

PATIENT
  Age: 75 Year
  Sex: Male

DRUGS (14)
  1. MIRAPEX [Concomitant]
     Active Substance: PRAMIPEXOLE DIHYDROCHLORIDE
  2. LEVOTHYROXINE [Concomitant]
     Active Substance: LEVOTHYROXINE
  3. NEXIUM [Concomitant]
     Active Substance: ESOMEPRAZOLE MAGNESIUM
  4. DIGOXIN. [Concomitant]
     Active Substance: DIGOXIN
  5. FENOFIBRATE. [Concomitant]
     Active Substance: FENOFIBRATE
  6. SINEMET [Concomitant]
     Active Substance: CARBIDOPA\LEVODOPA
     Dosage: 1 DF :25-100MG
  7. COLESTIPOL HCL [Concomitant]
     Active Substance: COLESTIPOL HYDROCHLORIDE
  8. ASPIRIN. [Concomitant]
     Active Substance: ASPIRIN
  9. CLONAZEPAM. [Concomitant]
     Active Substance: CLONAZEPAM
  10. COUMADIN [Suspect]
     Active Substance: WARFARIN SODIUM
     Dosage: 5MG
  11. LISINOPRIL. [Concomitant]
     Active Substance: LISINOPRIL
  12. ATORVASTATIN [Concomitant]
     Active Substance: ATORVASTATIN
  13. METOPROLOL TARTRATE. [Concomitant]
     Active Substance: METOPROLOL TARTRATE
  14. DILTIA [Concomitant]

REACTIONS (2)
  - Dysgeusia [Unknown]
  - Weight decreased [Unknown]
